FAERS Safety Report 14881690 (Version 1)
Quarter: 2018Q2

REPORT INFORMATION
  Report Type: Spontaneous
  Country: PF (occurrence: PF)
  Receive Date: 20180511
  Receipt Date: 20180511
  Transmission Date: 20180711
  Serious: Yes (Hospitalization, Other)
  Sender: FDA-Public Use
  Company Number: PF-IMPAX LABORATORIES, INC-2018-IPXL-00164

PATIENT
  Age: 19 Year
  Sex: Female

DRUGS (1)
  1. GRISEOFULVIN ULTRAMICROSIZE [Suspect]
     Active Substance: GRISEOFULVIN
     Indication: FUNGAL INFECTION
     Dosage: UNK
     Route: 048

REACTIONS (3)
  - Toxic epidermal necrolysis [Recovering/Resolving]
  - Hypovolaemic shock [Unknown]
  - Intentional product misuse [Unknown]
